FAERS Safety Report 25665249 (Version 1)
Quarter: 2025Q3

REPORT INFORMATION
  Report Type: Report from Study
  Country: EU (occurrence: EU)
  Receive Date: 20250811
  Receipt Date: 20250811
  Transmission Date: 20251020
  Serious: Yes (Other)
  Sender: CHEPLAPHARM
  Company Number: EU-CHEPLA-2025009548

PATIENT
  Age: 2 Month
  Sex: Male

DRUGS (1)
  1. GANCICLOVIR [Suspect]
     Active Substance: GANCICLOVIR
     Indication: Cytomegalovirus infection

REACTIONS (12)
  - Leukopenia [Unknown]
  - Cardiac failure [Unknown]
  - Acute respiratory failure [Unknown]
  - Renal failure [Unknown]
  - Brain injury [Unknown]
  - Seizure [Unknown]
  - Intraventricular haemorrhage neonatal [Unknown]
  - Condition aggravated [Unknown]
  - Premature baby [Unknown]
  - Metabolic disorder [Unknown]
  - Electrolyte imbalance [Unknown]
  - Off label use [Unknown]
